FAERS Safety Report 7694090-0 (Version None)
Quarter: 2011Q3

REPORT INFORMATION
  Report Type: 
  Country: None (occurrence: None)
  Receive Date: 20110816
  Receipt Date: 20110803
  Transmission Date: 20111222
  Serious: Yes (Other)
  Sender: FDA-Public Use
  Company Number: GER/UKI/11/0020577

PATIENT
  Age: 43 Year
  Sex: Female
  Weight: 47 kg

DRUGS (9)
  1. LORATADINE [Concomitant]
  2. CO-CODAMOL (PANADEINE CO) [Concomitant]
  3. METRONIDAZOLE [Concomitant]
  4. SERTRALINE HYDROCHLORIDE [Suspect]
     Indication: PRODUCT USED FOR UNKNOWN INDICATION
     Dates: start: 20110712
  5. HYOSCINE BUTYLBROMIDE (HYSOCINE BUTYLBROMIDE) [Concomitant]
  6. KLIOFEM(KLIOGEST /00686201/) [Concomitant]
  7. LEVOTHYROXINE SODIUM [Concomitant]
  8. MEBEVERINE HYDROCHLORIDE(MEBVERINE HYDROCHLORIDE) [Concomitant]
  9. PROGUANIL (PROGUANIL) [Concomitant]

REACTIONS (3)
  - LETHARGY [None]
  - FATIGUE [None]
  - SOMNOLENCE [None]
